FAERS Safety Report 9234449 (Version 1)
Quarter: 2013Q2

REPORT INFORMATION
  Report Type: Spontaneous
  Country: US (occurrence: US)
  Receive Date: 20130416
  Receipt Date: 20130416
  Transmission Date: 20140414
  Serious: No
  Sender: FDA-Public Use
  Company Number: US-BANPHARM-20120052

PATIENT
  Age: 79 Year
  Sex: Male
  Weight: 70.29 kg

DRUGS (9)
  1. ALEVE LIQUID GELS 220 MG [Suspect]
     Indication: BACK PAIN
     Dosage: 1 DF, BID,
     Route: 048
     Dates: start: 201205
  2. COQ10 (UBIDECARENONE) [Concomitant]
     Route: 048
  3. RED YEAST RICE (OTHER CHOLESTEROL AND TRIGLYCERIDE REDUCERS) [Concomitant]
     Route: 048
  4. BENICAR [Concomitant]
  5. SYNTHROID [Concomitant]
  6. ASPIRIN 162.5 MG [Concomitant]
     Indication: PROPHYLAXIS
  7. ZETIA [Concomitant]
  8. MULTIVITAMIN [Concomitant]
  9. FISH OIL [Concomitant]

REACTIONS (3)
  - Rash [Not Recovered/Not Resolved]
  - Blood pressure increased [Not Recovered/Not Resolved]
  - Incorrect drug administration duration [Unknown]
